FAERS Safety Report 5147998-4 (Version None)
Quarter: 2006Q4

REPORT INFORMATION
  Report Type: 
  Country: None (occurrence: None)
  Receive Date: 20061110
  Receipt Date: 20050923
  Transmission Date: 20070319
  Serious: Yes (Other)
  Sender: FDA-Public Use
  Company Number: US-GLAXOSMITHKLINE-A0575762A

PATIENT
  Sex: Male
  Weight: 3.5 kg

DRUGS (6)
  1. WELLBUTRIN XL [Suspect]
     Indication: MAJOR DEPRESSION
     Dates: start: 20050528, end: 20050915
  2. ZOLOFT [Concomitant]
     Indication: MAJOR DEPRESSION
     Dosage: 25MG PER DAY
     Dates: start: 20050512, end: 20050523
  3. PROGESTERONE [Concomitant]
  4. ASPIRIN [Concomitant]
     Dosage: 81MG PER DAY
     Dates: end: 20050915
  5. PRENATAL VITAMINS [Concomitant]
     Dosage: 1TAB PER DAY
     Dates: end: 20050915
  6. CLONAZEPAM [Concomitant]
     Indication: ANXIETY
     Dosage: .5MG VARIABLE DOSE
     Dates: start: 20050413, end: 20050915

REACTIONS (3)
  - CAMPBELL DE MORGAN SPOTS [None]
  - CRYPTORCHISM [None]
  - DRUG EXPOSURE DURING PREGNANCY [None]
